FAERS Safety Report 20112644 (Version 2)
Quarter: 2022Q1

REPORT INFORMATION
  Report Type: Spontaneous
  Country: DE (occurrence: DE)
  Receive Date: 20211125
  Receipt Date: 20220131
  Transmission Date: 20220423
  Serious: Yes (Hospitalization, Other)
  Sender: FDA-Public Use
  Company Number: DE-002147023-NVSC2021DE262532

PATIENT

DRUGS (1)
  1. RUXOLITINIB [Suspect]
     Active Substance: RUXOLITINIB
     Indication: Polycythaemia vera
     Dosage: 5-0-10
     Route: 065
     Dates: start: 202104, end: 202111

REACTIONS (14)
  - Constipation [Unknown]
  - Mucosal dryness [Unknown]
  - Fall [Unknown]
  - Asthenia [Unknown]
  - Haemoglobin decreased [Unknown]
  - Oral herpes [Unknown]
  - Liver function test increased [Unknown]
  - Product administration error [Unknown]
  - Decreased appetite [Unknown]
  - Cardiovascular disorder [Unknown]
  - Nausea [Unknown]
  - Sjogren^s syndrome [Unknown]
  - Platelet count increased [Unknown]
  - Fatigue [Unknown]

NARRATIVE: CASE EVENT DATE: 20210101
